FAERS Safety Report 6933787-4 (Version None)
Quarter: 2010Q3

REPORT INFORMATION
  Report Type: 
  Country: None (occurrence: None)
  Receive Date: 20100817
  Receipt Date: 20100809
  Transmission Date: 20110219
  Serious: Yes (Other)
  Sender: FDA-Public Use
  Company Number: 2010SP038038

PATIENT
  Age: 21 Year
  Sex: Female
  Weight: 44.9061 kg

DRUGS (7)
  1. IMPLANON [Suspect]
     Indication: CONTRACEPTION
     Dosage: 1 DF; SBDE
     Dates: start: 20091012
  2. ADDERALL (CON.) [Concomitant]
  3. XANAX (CON.) [Concomitant]
  4. ACYCLOVIR (CON.) [Concomitant]
  5. EFFEXOR XR (CON.) [Concomitant]
  6. DEPAKOTE (CON.) [Concomitant]
  7. PRILOSEC (CON.) [Concomitant]

REACTIONS (3)
  - DEVICE EXTRUSION [None]
  - IMPLANT SITE PAIN [None]
  - OVARIAN CYST RUPTURED [None]
